FAERS Safety Report 14015010 (Version 5)
Quarter: 2017Q4

REPORT INFORMATION
  Report Type: Report from Study
  Country: CO (occurrence: CO)
  Receive Date: 20170927
  Receipt Date: 20171107
  Transmission Date: 20180321
  Serious: Yes (Death, Hospitalization)
  Sender: FDA-Public Use
  Company Number: PHHY2017CO132573

PATIENT
  Age: 57 Year
  Sex: Male

DRUGS (2)
  1. WARFARIN [Concomitant]
     Active Substance: WARFARIN
     Indication: PRODUCT USED FOR UNKNOWN INDICATION
     Route: 065
  2. ENTRESTO [Suspect]
     Active Substance: SACUBITRIL\VALSARTAN
     Indication: CARDIAC FAILURE
     Dosage: 200 MG, Q12H
     Route: 048
     Dates: start: 20170507, end: 201708

REACTIONS (9)
  - Cerebrovascular accident [Unknown]
  - Coma [Unknown]
  - Brain death [Fatal]
  - Blood glucose increased [Unknown]
  - Aphasia [Unknown]
  - Hypophagia [Unknown]
  - Effusion [Unknown]
  - Hypokinesia [Unknown]
  - Headache [Unknown]

NARRATIVE: CASE EVENT DATE: 20171024
